FAERS Safety Report 4399437-9 (Version None)
Quarter: 2004Q3

REPORT INFORMATION
  Report Type: 
  Country: None (occurrence: None)
  Receive Date: 20040712
  Receipt Date: 20040628
  Transmission Date: 20050211
  Serious: No
  Sender: FDA-Public Use
  Company Number: USA-2004-0015758

PATIENT
  Sex: Female

DRUGS (2)
  1. OXYCODONE HCL [Suspect]
     Indication: PAIN
     Dosage: 100 MG, SEE TEXT, ORAL
     Route: 048
     Dates: start: 20040625, end: 20040625
  2. DURAGESIC [Suspect]
     Indication: PAIN
     Dosage: TRANSDERMAL
     Route: 062
     Dates: start: 20040625

REACTIONS (3)
  - DYSPNOEA [None]
  - MEDICATION ERROR [None]
  - RESPIRATORY RATE DECREASED [None]
